FAERS Safety Report 9122563 (Version 1)
Quarter: 2013Q1

REPORT INFORMATION
  Report Type: Spontaneous
  Country: AR (occurrence: AR)
  Receive Date: 20130227
  Receipt Date: 20130227
  Transmission Date: 20140127
  Serious: Yes (Other)
  Sender: FDA-Public Use
  Company Number: PHHY2013AR018900

PATIENT
  Sex: Female

DRUGS (2)
  1. DIOVAN [Suspect]
     Indication: HYPERTENSION
     Dosage: 1 DF (320MG), DAILY
     Route: 048
     Dates: end: 201209
  2. EXFORGE [Suspect]
     Indication: HYPERTENSION
     Dosage: 1 DF (160/10MG),
     Route: 048

REACTIONS (3)
  - Coronary artery disease [Not Recovered/Not Resolved]
  - Palpitations [Not Recovered/Not Resolved]
  - Chest pain [Not Recovered/Not Resolved]
